FAERS Safety Report 24238629 (Version 1)
Quarter: 2024Q3

REPORT INFORMATION
  Report Type: Spontaneous
  Country: CA (occurrence: CA)
  Receive Date: 20240822
  Receipt Date: 20240822
  Transmission Date: 20241017
  Serious: Yes (Other)
  Sender: VERTEX
  Company Number: CA-VERTEX PHARMACEUTICALS-2024-013325

PATIENT
  Age: 11 Year
  Sex: Female

DRUGS (1)
  1. TRIKAFTA [Suspect]
     Active Substance: ELEXACAFTOR\IVACAFTOR\TEZACAFTOR
     Indication: Cystic fibrosis
     Dosage: UNKNOWN DOSAGE REGIMEN
     Route: 048

REACTIONS (4)
  - Intracranial pressure increased [Recovering/Resolving]
  - Idiopathic intracranial hypertension [Recovering/Resolving]
  - Papilloedema [Recovering/Resolving]
  - Headache [Recovering/Resolving]
